FAERS Safety Report 4748508-3 (Version None)
Quarter: 2005Q3

REPORT INFORMATION
  Report Type: 
  Country: None (occurrence: None)
  Receive Date: 20050818
  Receipt Date: 20050818
  Transmission Date: 20060218
  Serious: Yes (Hospitalization)
  Sender: FDA-Public Use
  Company Number: None

PATIENT
  Age: 56 Year
  Sex: Male
  Weight: 83 kg

DRUGS (19)
  1. ACYCLOVIR [Suspect]
     Indication: HERPES ZOSTER
     Dosage: 500MG  Q12H   INTRAVENOU
     Route: 042
     Dates: start: 20050708, end: 20050712
  2. ATAZANAVIR [Concomitant]
  3. CALCIUM ACETATE [Concomitant]
  4. CAMPHOR/MENTHOL [Concomitant]
  5. DARBEPOETIN ALFA [Concomitant]
  6. DEXAMETHASONE /TOBRAMYCIN [Concomitant]
  7. DIPHENHYDRAMINE HCL [Concomitant]
  8. DOCUSATE [Concomitant]
  9. FERROUS SULFATE TAB [Concomitant]
  10. HOMATROPINE HYDROBROMIDE [Concomitant]
  11. LAMIVUDINE [Concomitant]
  12. MULTI-VITAMINS [Concomitant]
  13. OXYCODONE HCL [Concomitant]
  14. PREDNISOLONE ACETATE [Concomitant]
  15. RITONAVIR [Concomitant]
  16. SENNOSIDES [Concomitant]
  17. STAVUDINE [Concomitant]
  18. TERAZOSIN [Concomitant]
  19. EUCERIN [Concomitant]

REACTIONS (2)
  - RENAL FAILURE ACUTE [None]
  - RENAL FAILURE CHRONIC [None]
